FAERS Safety Report 7122159-8 (Version None)
Quarter: 2010Q4

REPORT INFORMATION
  Report Type: 
  Country: None (occurrence: None)
  Receive Date: 20101119
  Receipt Date: 20101119
  Transmission Date: 20110411
  Serious: No
  Sender: FDA-Public Use
  Company Number: None

PATIENT
  Age: 37 Year
  Sex: Male
  Weight: 92.9874 kg

DRUGS (2)
  1. VENLAFAXINE [Suspect]
     Indication: ANXIETY
     Dosage: 3 CAPSULES QD PO
     Route: 048
     Dates: start: 20100801, end: 20101117
  2. VENLAFAXINE [Suspect]
     Indication: NERVOUSNESS
     Dosage: 3 CAPSULES QD PO
     Route: 048
     Dates: start: 20100801, end: 20101117

REACTIONS (7)
  - BLOOD PRESSURE INCREASED [None]
  - CONDITION AGGRAVATED [None]
  - FEELING JITTERY [None]
  - MEDICATION RESIDUE [None]
  - NAUSEA [None]
  - NERVOUSNESS [None]
  - PRODUCT SUBSTITUTION ISSUE [None]
